FAERS Safety Report 9401239 (Version 1)
Quarter: 2013Q3

REPORT INFORMATION
  Report Type: Spontaneous
  Country: OM (occurrence: OM)
  Receive Date: 20130715
  Receipt Date: 20130715
  Transmission Date: 20140515
  Serious: Yes (Life-Threatening, Hospitalization, Other)
  Sender: FDA-Public Use
  Company Number: OM-MYLANLABS-2013S1015027

PATIENT
  Age: 18 Year
  Sex: Male

DRUGS (3)
  1. TRETINOIN [Suspect]
     Indication: ACUTE PROMYELOCYTIC LEUKAEMIA
     Dosage: 45 MG/M2
     Route: 065
  2. IDARUBICIN [Concomitant]
     Indication: ACUTE PROMYELOCYTIC LEUKAEMIA
     Dosage: 15 MG/M2/DAY FOR 3 DAYS
     Route: 065
  3. DEXAMETHASONE [Concomitant]
     Route: 065

REACTIONS (2)
  - Scrotal ulcer [Recovered/Resolved]
  - Retinoic acid syndrome [Unknown]
